FAERS Safety Report 14154065 (Version 5)
Quarter: 2018Q1

REPORT INFORMATION
  Report Type: Spontaneous
  Country: US (occurrence: US)
  Receive Date: 20171102
  Receipt Date: 20180305
  Transmission Date: 20180508
  Serious: Yes (Death, Hospitalization, Other)
  Sender: FDA-Public Use
  Company Number: US-009507513-1711USA000140

PATIENT
  Age: 55 Year
  Sex: Female
  Weight: 119.6 kg

DRUGS (2)
  1. KEYTRUDA [Suspect]
     Active Substance: PEMBROLIZUMAB
     Indication: ANAPLASTIC THYROID CANCER
     Dosage: 200 MG, Q3W
     Route: 042
     Dates: start: 20171027, end: 20171027
  2. KEYTRUDA [Suspect]
     Active Substance: PEMBROLIZUMAB
     Dosage: 36 (UNIT NOT PROVIDED); DAY1 EVERY 21 DAY
     Route: 042
     Dates: start: 20171030, end: 20171208

REACTIONS (20)
  - Hyperglycaemia [Unknown]
  - Dyspnoea [Recovered/Resolved]
  - Malnutrition [Unknown]
  - Obstructive airways disorder [Recovering/Resolving]
  - Hypotension [Unknown]
  - Clostridium difficile infection [Unknown]
  - Pneumonitis [Unknown]
  - Death [Fatal]
  - Deep vein thrombosis [Unknown]
  - Asthenia [Unknown]
  - Hypothyroidism [Unknown]
  - Gastrointestinal haemorrhage [Recovered/Resolved]
  - Thrombocytopenia [Unknown]
  - Urticaria [Unknown]
  - Respiratory failure [Unknown]
  - Anaemia [Unknown]
  - Mucosal inflammation [Unknown]
  - Stridor [Recovering/Resolving]
  - Malignant neoplasm progression [Unknown]
  - Product use in unapproved indication [Unknown]

NARRATIVE: CASE EVENT DATE: 2017
